FAERS Safety Report 5995061-2 (Version None)
Quarter: 2008Q4

REPORT INFORMATION
  Report Type: 
  Country: None (occurrence: None)
  Receive Date: 20081212
  Receipt Date: 20080924
  Transmission Date: 20090506
  Serious: No
  Sender: FDA-Public Use
  Company Number: US-ABBOTT-08P-163-0477998-00

PATIENT
  Sex: Male

DRUGS (4)
  1. HUMIRA [Suspect]
     Indication: PSORIASIS
     Route: 058
     Dates: start: 20080809
  2. ATORVASTATIN CALCIUM [Concomitant]
     Indication: BLOOD TRIGLYCERIDES INCREASED
  3. ESOMEPRAZOLE MAGNESIUM [Concomitant]
     Indication: GASTROOESOPHAGEAL REFLUX DISEASE
  4. NADOLOL [Concomitant]
     Indication: MIGRAINE

REACTIONS (3)
  - ERYTHEMA [None]
  - PRURITUS [None]
  - SKIN EXFOLIATION [None]
